FAERS Safety Report 23388952 (Version 1)
Quarter: 2024Q1

REPORT INFORMATION
  Report Type: Spontaneous
  Country: CH (occurrence: CH)
  Receive Date: 20240110
  Receipt Date: 20240110
  Transmission Date: 20240410
  Serious: Yes (Hospitalization, Other)
  Sender: FDA-Public Use
  Company Number: None

PATIENT
  Age: 19 Year
  Weight: 42.5 kg

DRUGS (5)
  1. IBUPROFEN [Suspect]
     Active Substance: IBUPROFEN
     Indication: Headache
     Dosage: PRESCRIBED ON 02.10. OR 03.10.2023, BUT DOSAGE UNCLEAR AND UNCLEAR WHETHER PATIENT HAS TAKEN THE ...
     Route: 048
     Dates: start: 202310
  2. DAFALGAN [Suspect]
     Active Substance: ACETAMINOPHEN
     Indication: Headache
     Dosage: PRESCRIBED ON 02.10. OR 03.10.2023, BUT DOSAGE UNCLEAR AND UNCLEAR WHETHER PATIENT HAS TAKEN THE ...
     Route: 048
  3. MAGNESIUM ASPARTATE HYDROCHLORIDE [Concomitant]
     Active Substance: MAGNESIUM ASPARTATE HYDROCHLORIDE
     Indication: Product used for unknown indication
     Dosage: START DATE UNKNOWN
     Route: 048
  4. NOVALGIN (METAMIZOLE SODIUM) [Suspect]
     Active Substance: METAMIZOLE SODIUM
     Indication: Headache
     Dosage: IN TOTAL
     Route: 048
     Dates: start: 20231003, end: 20231003
  5. KCL [Concomitant]
     Active Substance: POTASSIUM CHLORIDE
     Indication: Hypokalaemia
     Dosage: KCL RETARD 2-2-2. START DATE UNKNOWN
     Route: 048

REACTIONS (6)
  - Agranulocytosis [Not Recovered/Not Resolved]
  - Pancytopenia [Not Recovered/Not Resolved]
  - Agranulocytosis [Unknown]
  - Anaemia [Not Recovered/Not Resolved]
  - Pharyngeal abscess [Unknown]
  - Febrile neutropenia [Recovered/Resolved]

NARRATIVE: CASE EVENT DATE: 20231006
